FAERS Safety Report 14200385 (Version 7)
Quarter: 2018Q3

REPORT INFORMATION
  Report Type: Spontaneous
  Country: IT (occurrence: IT)
  Receive Date: 20171117
  Receipt Date: 20180823
  Transmission Date: 20181010
  Serious: Yes (Life-Threatening, Hospitalization, Other)
  Sender: FDA-Public Use
  Company Number: IT-PFIZER INC-2017489558

PATIENT
  Age: 15 Year
  Sex: Female
  Weight: 85 kg

DRUGS (41)
  1. LASIX [Concomitant]
     Active Substance: FUROSEMIDE
     Dosage: 120 MG, QD ( DAILY)
     Route: 042
     Dates: start: 20170523, end: 20170620
  2. LASIX [Concomitant]
     Active Substance: FUROSEMIDE
     Dosage: 30 ML, UNK
     Route: 042
  3. LASIX [Concomitant]
     Active Substance: FUROSEMIDE
     Dosage: 15 ML, UNK
     Route: 042
  4. LASIX [Concomitant]
     Active Substance: FUROSEMIDE
     Dosage: 2400 MG, UNK
     Dates: start: 20170523, end: 20170529
  5. LASIX [Concomitant]
     Active Substance: FUROSEMIDE
     Dosage: 400 MG, UNK
  6. LASIX [Concomitant]
     Active Substance: FUROSEMIDE
     Dosage: 1000 MG, UNK
     Route: 048
     Dates: start: 20170523, end: 20170606
  7. LASIX [Concomitant]
     Active Substance: FUROSEMIDE
     Dosage: 300 MG, UNK
     Dates: start: 20170526, end: 20170531
  8. LASIX [Concomitant]
     Active Substance: FUROSEMIDE
     Dosage: 1 DF, UNK (1 DF = ^1T^)
     Dates: start: 20170524, end: 20170527
  9. EMEND [Concomitant]
     Active Substance: APREPITANT
     Dosage: UNK
  10. RANITIDINE. [Concomitant]
     Active Substance: RANITIDINE
     Dosage: 150 MG, QD (DAILY)
     Route: 048
     Dates: start: 20170523, end: 20170602
  11. FLUCONAZOLE. [Concomitant]
     Active Substance: FLUCONAZOLE
     Dosage: 400 MG, QD (DAILY)
     Route: 042
     Dates: start: 20170523, end: 20170606
  12. POTASSIUM CHLORIDE. [Concomitant]
     Active Substance: POTASSIUM CHLORIDE
     Dosage: 15 UNK, QD (DAILY)
     Dates: start: 20170524
  13. RANITIDINE HYDROCHLORIDE. [Concomitant]
     Active Substance: RANITIDINE HYDROCHLORIDE
     Dosage: 150 MG, 1X/DAY
     Route: 048
     Dates: start: 20170523, end: 20170602
  14. LASIX [Concomitant]
     Active Substance: FUROSEMIDE
     Dosage: 10 ML, UNK
     Route: 042
  15. ZOVIRAX [Concomitant]
     Active Substance: ACYCLOVIR
     Dosage: 2400 MG, QD (DAILY)
     Route: 048
     Dates: start: 20170523, end: 20170529
  16. HEPARIN SODIUM. [Concomitant]
     Active Substance: HEPARIN SODIUM
     Dosage: 8500 IU, QD (DAILY)
     Route: 058
     Dates: start: 20170523, end: 20170623
  17. ALLOPURINOL. [Concomitant]
     Active Substance: ALLOPURINOL
     Dosage: 300 MG, DAILY
     Dates: start: 20170526, end: 20170531
  18. ALKERAN [Suspect]
     Active Substance: MELPHALAN
     Indication: AUTOLOGOUS BONE MARROW TRANSPLANTATION THERAPY
     Dosage: 280 MG, 1X/DAY
     Route: 042
     Dates: start: 20170530, end: 20170530
  19. ALOXI [Concomitant]
     Active Substance: PALONOSETRON HYDROCHLORIDE
     Dosage: 1 DF, QD (DAILY)
     Route: 042
     Dates: start: 20170524, end: 20170527
  20. DEURSIL [Concomitant]
     Active Substance: URSODIOL
     Dosage: 3000 MG, UNK
  21. RANITIDINE. [Concomitant]
     Active Substance: RANITIDINE
     Dosage: 150 MG, QD (DAILY)
     Route: 042
     Dates: start: 20170523, end: 20170602
  22. CYTARABINE. [Suspect]
     Active Substance: CYTARABINE
     Dosage: 400 MG, 1X/DAY
     Route: 042
     Dates: start: 20170529
  23. ETOPOSIDE. [Suspect]
     Active Substance: ETOPOSIDE
     Indication: AUTOLOGOUS BONE MARROW TRANSPLANTATION THERAPY
     Dosage: 400 MG, DAILY
     Route: 042
     Dates: start: 20170526, end: 20170529
  24. ETOPOSIDE. [Suspect]
     Active Substance: ETOPOSIDE
     Dosage: 400 MG, 1X/DAY
     Route: 042
     Dates: start: 20170529
  25. ALOXI [Concomitant]
     Active Substance: PALONOSETRON HYDROCHLORIDE
     Dosage: 4 DF, UNK (1DF= 1T)
  26. LASIX [Concomitant]
     Active Substance: FUROSEMIDE
     Dosage: UNK
     Dates: start: 20170523, end: 20170527
  27. EMEND [Concomitant]
     Active Substance: APREPITANT
     Dosage: UNK
     Dates: start: 20170523, end: 20170527
  28. CIPROXIN [Concomitant]
     Active Substance: CIPROFLOXACIN
     Dosage: 5 G, UNK
  29. CYTARABINE. [Suspect]
     Active Substance: CYTARABINE
     Indication: AUTOLOGOUS BONE MARROW TRANSPLANTATION THERAPY
     Dosage: 400 MG, DAILY
     Route: 042
     Dates: start: 20170526, end: 20170529
  30. FOTEMUSTINE [Suspect]
     Active Substance: FOTEMUSTINE
     Indication: AUTOLOGOUS BONE MARROW TRANSPLANTATION THERAPY
     Dosage: 300 MG, DAILY
     Route: 042
     Dates: start: 20170524, end: 20170525
  31. FOTEMUSTINE [Suspect]
     Active Substance: FOTEMUSTINE
     Dosage: 300 MG, QD (1X/DAY)
     Route: 042
     Dates: start: 20170525
  32. LASIX [Concomitant]
     Active Substance: FUROSEMIDE
     Dosage: 150 MG, UNK
     Route: 042
     Dates: start: 20170523, end: 20170602
  33. LASIX [Concomitant]
     Active Substance: FUROSEMIDE
     Dosage: 600 MG, UNK
     Route: 048
     Dates: start: 20170523, end: 20170623
  34. HEPARIN [Concomitant]
     Active Substance: HEPARIN SODIUM
     Dosage: 8500 IU, 1X/DAY
     Route: 058
     Dates: start: 20170523
  35. LASIX [Concomitant]
     Active Substance: FUROSEMIDE
     Dosage: 30 UNK, UNK
  36. DEURSIL [Concomitant]
     Active Substance: URSODIOL
     Dosage: 600 MG, QD (DAILY)
     Route: 048
     Dates: start: 20170523, end: 20170623
  37. CIPROXIN [Concomitant]
     Active Substance: CIPROFLOXACIN
     Dosage: 1000 MG, QD (DAILY)
     Route: 048
     Dates: start: 20170523, end: 20170606
  38. ZOVIRAX [Concomitant]
     Active Substance: ACYCLOVIR
     Dosage: 12000 MG, UNK
  39. FOTEMUSTINE [Suspect]
     Active Substance: FOTEMUSTINE
     Dosage: 1600 MG, UNK
  40. MAGNESIUM CHLORIDE. [Concomitant]
     Active Substance: MAGNESIUM CHLORIDE
     Dosage: 10 ML, QD (DAILY)
     Dates: start: 20170525
  41. NYSTATIN. [Concomitant]
     Active Substance: NYSTATIN
     Dosage: 30 ML, QD (DAILY)
     Route: 048
     Dates: start: 20170523, end: 20170623

REACTIONS (15)
  - Tonsillar haemorrhage [Unknown]
  - Neutropenia [Recovered/Resolved]
  - Diarrhoea [Unknown]
  - Tonsillitis [Unknown]
  - Mucosal inflammation [Recovering/Resolving]
  - Vomiting [Recovered/Resolved]
  - Erythema [Recovered/Resolved]
  - Product use in unapproved indication [Unknown]
  - Cough [Recovered/Resolved]
  - Pyrexia [Recovered/Resolved]
  - Oropharyngeal pain [Recovered/Resolved]
  - Thrombocytopenia [Recovered/Resolved]
  - Off label use [Recovered/Resolved]
  - Faeces soft [Recovering/Resolving]
  - Drug administered to patient of inappropriate age [Recovered/Resolved]

NARRATIVE: CASE EVENT DATE: 20170524
